FAERS Safety Report 6317211-0 (Version None)
Quarter: 2009Q3

REPORT INFORMATION
  Report Type: 
  Country: None (occurrence: None)
  Receive Date: 20090819
  Receipt Date: 20090809
  Transmission Date: 20100115
  Serious: Yes (Other)
  Sender: FDA-Public Use
  Company Number: SP00833

PATIENT
  Age: 60 Year
  Sex: Female
  Weight: 53.6 kg

DRUGS (6)
  1. VISICOL [Suspect]
     Indication: COLONOSCOPY
     Dosage: 28 TABLETS, ORAL
     Route: 048
     Dates: start: 20050407, end: 20050407
  2. METOPROLOL [Concomitant]
  3. LOTREL [Concomitant]
  4. ATORVASTATIN [Concomitant]
  5. LEVOTHYROXINE SODIUM [Concomitant]
  6. DETROL [Concomitant]

REACTIONS (2)
  - DECREASED APPETITE [None]
  - NEPHROCALCINOSIS [None]
